FAERS Safety Report 21171712 (Version 1)
Quarter: 2022Q3

REPORT INFORMATION
  Report Type: Spontaneous
  Country: US (occurrence: None)
  Receive Date: 20220803
  Receipt Date: 20220803
  Transmission Date: 20221026
  Serious: Yes (Disabling)
  Sender: FDA-Public Use
  Company Number: None

PATIENT
  Age: 75 Year
  Sex: Female
  Weight: 87.3 kg

DRUGS (15)
  1. LEVOFLOXACIN [Suspect]
     Active Substance: LEVOFLOXACIN
     Indication: Urinary tract infection
     Dosage: OTHER QUANTITY : 3 TABLET(S);?FREQUENCY : DAILY;?
     Route: 048
     Dates: start: 20211019, end: 20211021
  2. MICARDIS HCT [Concomitant]
     Active Substance: HYDROCHLOROTHIAZIDE\TELMISARTAN
  3. LEVOTHYROXIN [Concomitant]
  4. ZETIA [Concomitant]
  5. LIOTHYRONINE SODIUM [Concomitant]
     Active Substance: LIOTHYRONINE SODIUM
  6. METHOTREXATE [Concomitant]
  7. PLAQUENIL [Concomitant]
  8. GABAPENTIN [Concomitant]
     Active Substance: GABAPENTIN
  9. VITAMIN D3 [Concomitant]
     Active Substance: CHOLECALCIFEROL
  10. VITAMIN K [Concomitant]
     Active Substance: PHYTONADIONE
  11. COENZYME Q10 [Concomitant]
     Active Substance: DIETARY SUPPLEMENT\UBIDECARENONE
  12. TURMERIC/CURCUMIN [Concomitant]
  13. DHA/EPA [Concomitant]
  14. FOLATE SODIUM [Concomitant]
     Active Substance: FOLATE SODIUM
  15. PROBIOTIC [Concomitant]

REACTIONS (5)
  - Tendonitis [None]
  - Arthralgia [None]
  - Joint range of motion decreased [None]
  - Tendon rupture [None]
  - Tendon injury [None]

NARRATIVE: CASE EVENT DATE: 20220725
